FAERS Safety Report 13728866 (Version 1)
Quarter: 2017Q3

REPORT INFORMATION
  Report Type: Report from Study
  Country: None (occurrence: BR)
  Receive Date: 20170707
  Receipt Date: 20170707
  Transmission Date: 20171127
  Serious: Yes (Other)
  Sender: FDA-Public Use
  Company Number: BR-ABBVIE-17K-020-2028982-00

PATIENT
  Age: 44 Year
  Sex: Female
  Weight: 81 kg

DRUGS (11)
  1. HUMIRA [Suspect]
     Active Substance: ADALIMUMAB
     Route: 058
  2. NEBILET [Concomitant]
     Active Substance: NEBIVOLOL
     Indication: HEART RATE DECREASED
     Route: 048
     Dates: start: 2016
  3. RIVOTRIL [Concomitant]
     Active Substance: CLONAZEPAM
     Indication: IRRITABILITY
     Route: 048
  4. FRISIUM [Concomitant]
     Active Substance: CLOBAZAM
     Indication: IRRITABILITY
     Route: 048
     Dates: start: 201701
  5. AMITRIPTYLINE [Concomitant]
     Active Substance: AMITRIPTYLINE
     Indication: INSOMNIA
     Route: 048
     Dates: start: 2013
  6. PREDNISONE. [Concomitant]
     Active Substance: PREDNISONE
     Indication: CROHN^S DISEASE
     Route: 048
     Dates: start: 2013
  7. CYCLOBENZAPRINE. [Concomitant]
     Active Substance: CYCLOBENZAPRINE
     Indication: SOCIAL PROBLEM
     Route: 048
  8. AZATHIOPRINE. [Concomitant]
     Active Substance: AZATHIOPRINE
     Indication: CROHN^S DISEASE
     Route: 048
     Dates: start: 20130101
  9. ENALAPRIL [Concomitant]
     Active Substance: ENALAPRIL
     Indication: BLOOD PRESSURE MEASUREMENT
     Route: 048
     Dates: start: 2016
  10. HUMIRA [Suspect]
     Active Substance: ADALIMUMAB
     Indication: CROHN^S DISEASE
     Dosage: LOADING DOSE WEEK 0
     Route: 058
     Dates: start: 20130608, end: 20130608
  11. FLUOXETINE [Concomitant]
     Active Substance: FLUOXETINE HYDROCHLORIDE
     Indication: ANXIETY
     Route: 048
     Dates: start: 2013

REACTIONS (6)
  - Colitis ulcerative [Not Recovered/Not Resolved]
  - Drug effect incomplete [Unknown]
  - Crohn^s disease [Not Recovered/Not Resolved]
  - Uterine infection [Recovered/Resolved]
  - Glaucoma [Not Recovered/Not Resolved]
  - Gastrointestinal inflammation [Unknown]

NARRATIVE: CASE EVENT DATE: 2015
